FAERS Safety Report 8036114-7 (Version None)
Quarter: 2012Q1

REPORT INFORMATION
  Report Type: 
  Country: None (occurrence: None)
  Receive Date: 20120106
  Receipt Date: 20111228
  Transmission Date: 20120608
  Serious: Yes (Life-Threatening)
  Sender: FDA-Public Use
  Company Number: 2011SP060028

PATIENT
  Age: 44 Year
  Sex: Female

DRUGS (3)
  1. ROCURONIUM BROMIDE [Suspect]
     Indication: NEUROMUSCULAR BLOCKING THERAPY
     Dosage: 50 MG;IV
     Route: 042
     Dates: start: 20111227, end: 20111227
  2. PROPOFOL (OTHER MFR) [Concomitant]
  3. FENTANYL [Concomitant]

REACTIONS (3)
  - RESPIRATORY FAILURE [None]
  - BLOOD PRESSURE DECREASED [None]
  - PHARYNGEAL OEDEMA [None]
